FAERS Safety Report 4435957-6 (Version None)
Quarter: 2004Q3

REPORT INFORMATION
  Report Type: 
  Country: None (occurrence: None)
  Receive Date: 20040826
  Receipt Date: 20031222
  Transmission Date: 20050211
  Serious: Yes (Hospitalization)
  Sender: FDA-Public Use
  Company Number: 001-0981-993137

PATIENT
  Age: 59 Year
  Sex: Male
  Weight: 103.4201 kg

DRUGS (11)
  1. ATORVASTATIN CALCIUM [Suspect]
     Indication: CORONARY ARTERY DISEASE
     Dosage: 10 MG (DAILY), ORAL
     Route: 048
     Dates: start: 19980921, end: 19981115
  2. FELODIPINE [Concomitant]
  3. HYDROCHLOROTHIAZIDE [Concomitant]
  4. FOLIC ACID [Concomitant]
  5. ATENOLOL [Concomitant]
  6. GLIPIZIDE [Concomitant]
  7. OMEPRAZOLE [Concomitant]
  8. ISOSORBIDE (ISOSORBIDE) [Concomitant]
  9. CISAPRIDE (CISAPRIDE) [Concomitant]
  10. BUPROPION HYDROCHLORIDE [Concomitant]
  11. GLYCERYL TRIITRATE (GLYCERYL TRINITRATE) [Concomitant]

REACTIONS (4)
  - HYPOAESTHESIA [None]
  - PERIPHERAL VASCULAR DISORDER [None]
  - PNEUMONIA [None]
  - THORACIC OUTLET SYNDROME [None]
